FAERS Safety Report 6444311-7 (Version None)
Quarter: 2009Q4

REPORT INFORMATION
  Report Type: 
  Country: None (occurrence: None)
  Receive Date: 20091118
  Receipt Date: 20091109
  Transmission Date: 20100525
  Serious: Yes (Other)
  Sender: FDA-Public Use
  Company Number: PHEH2008US02081

PATIENT
  Sex: Female
  Weight: 25.3 kg

DRUGS (2)
  1. EXJADE [Suspect]
     Indication: IRON OVERLOAD
     Dosage: 500 MG, QD
     Route: 048
     Dates: start: 20060217
  2. EXJADE [Suspect]
     Dosage: 3 DF, UNK
     Dates: start: 20080215

REACTIONS (5)
  - DIARRHOEA [None]
  - HYPOPHAGIA [None]
  - INFLUENZA [None]
  - OVERDOSE [None]
  - RASH [None]
